FAERS Safety Report 10433500 (Version 1)
Quarter: 2014Q3

REPORT INFORMATION
  Report Type: Spontaneous
  Country: US (occurrence: US)
  Receive Date: 20140905
  Receipt Date: 20140905
  Transmission Date: 20150326
  Serious: No
  Sender: FDA-Public Use
  Company Number: US-PFIZER INC-2014246623

PATIENT
  Age: 84 Year
  Sex: Female

DRUGS (8)
  1. NEURONTIN [Suspect]
     Active Substance: GABAPENTIN
     Dosage: UNK
  2. CELEBREX [Suspect]
     Active Substance: CELECOXIB
     Dosage: UNK
  3. LIPITOR [Suspect]
     Active Substance: ATORVASTATIN CALCIUM
     Dosage: UNK
  4. MOBIC [Suspect]
     Active Substance: MELOXICAM
     Dosage: UNK
  5. ACTONEL [Suspect]
     Active Substance: RISEDRONATE SODIUM
     Dosage: UNK
  6. CRESTOR [Suspect]
     Active Substance: ROSUVASTATIN CALCIUM
     Dosage: UNK
  7. ZOCOR [Suspect]
     Active Substance: SIMVASTATIN
     Dosage: UNK
  8. PRAVACHOL [Suspect]
     Active Substance: PRAVASTATIN SODIUM
     Dosage: UNK

REACTIONS (1)
  - Drug hypersensitivity [Unknown]
